FAERS Safety Report 7340519-7 (Version None)
Quarter: 2011Q1

REPORT INFORMATION
  Report Type: 
  Country: None (occurrence: None)
  Receive Date: 20110309
  Receipt Date: 20110301
  Transmission Date: 20110831
  Serious: Yes (Other)
  Sender: FDA-Public Use
  Company Number: US-AMGEN-USASP2011011724

PATIENT
  Age: 89 Year
  Sex: Female

DRUGS (1)
  1. ENBREL [Suspect]
     Indication: PSORIATIC ARTHROPATHY
     Dates: start: 20040901

REACTIONS (6)
  - THYROID DISORDER [None]
  - DENTAL CARIES [None]
  - PSORIATIC ARTHROPATHY [None]
  - COUGH [None]
  - SNEEZING [None]
  - RHINORRHOEA [None]
